FAERS Safety Report 8071851-X (Version None)
Quarter: 2012Q1

REPORT INFORMATION
  Report Type: 
  Country: None (occurrence: None)
  Receive Date: 20120126
  Receipt Date: 20120118
  Transmission Date: 20120608
  Serious: No
  Sender: FDA-Public Use
  Company Number: US-BIOGENIDEC-2012BI002251

PATIENT
  Sex: Male

DRUGS (2)
  1. TYSABRI [Suspect]
     Indication: MULTIPLE SCLEROSIS
     Route: 042
     Dates: start: 20070920, end: 20110406
  2. TYSABRI [Suspect]
     Route: 042
     Dates: start: 20120105

REACTIONS (3)
  - MOBILITY DECREASED [None]
  - HYPOAESTHESIA [None]
  - PROSTATIC DISORDER [None]
